FAERS Safety Report 4538327-5 (Version None)
Quarter: 2004Q4

REPORT INFORMATION
  Report Type: 
  Country: None (occurrence: None)
  Receive Date: 20041221
  Receipt Date: 20041208
  Transmission Date: 20050328
  Serious: Yes (Hospitalization)
  Sender: FDA-Public Use
  Company Number: 2004CG02476

PATIENT
  Age: 77 Year
  Sex: Female

DRUGS (18)
  1. MOPRAL [Suspect]
     Dosage: 20 MG DAILY PO
     Route: 048
     Dates: start: 20041018
  2. DAFALGAN [Suspect]
     Dosage: 1 G TID PO
     Route: 048
     Dates: start: 20041010
  3. DEROXAT [Suspect]
     Dosage: 20 MG DAILY PO
     Route: 048
     Dates: start: 20041018
  4. DEPAKENE [Suspect]
     Indication: EPILEPSY
     Dosage: 1250 MG DAILY PO
     Route: 048
     Dates: start: 20041014, end: 20041115
  5. DEPAKENE [Suspect]
     Indication: EPILEPSY
     Dosage: 2000 MG DAILY PO
     Route: 048
     Dates: start: 20041115, end: 20041115
  6. DEPAKENE [Suspect]
     Indication: EPILEPSY
     Dosage: 500 MG TID PO
     Route: 048
     Dates: start: 20041116
  7. CORDARONE [Suspect]
     Indication: ARRHYTHMIA
     Dosage: 600 MG DAILY PO
     Route: 048
     Dates: start: 20041109, end: 20041109
  8. CORDARONE [Suspect]
     Indication: ATRIAL FIBRILLATION
     Dosage: 600 MG DAILY PO
     Route: 048
     Dates: start: 20041109, end: 20041109
  9. CORDARONE [Suspect]
     Indication: ARRHYTHMIA
     Dosage: 1200 MG DAILY PO
     Route: 048
     Dates: start: 20041110, end: 20041110
  10. CORDARONE [Suspect]
     Indication: ATRIAL FIBRILLATION
     Dosage: 1200 MG DAILY PO
     Route: 048
     Dates: start: 20041110, end: 20041110
  11. CORDARONE [Suspect]
     Indication: ARRHYTHMIA
     Dosage: 800 MG DAILY PO
     Route: 048
     Dates: start: 20041111, end: 20041111
  12. CORDARONE [Suspect]
     Indication: ATRIAL FIBRILLATION
     Dosage: 800 MG DAILY PO
     Route: 048
     Dates: start: 20041111, end: 20041111
  13. CORDARONE [Suspect]
     Indication: ARRHYTHMIA
     Dosage: 200 MG DAILY PO
     Route: 048
     Dates: start: 20041112
  14. CORDARONE [Suspect]
     Indication: ATRIAL FIBRILLATION
     Dosage: 200 MG DAILY PO
     Route: 048
     Dates: start: 20041112
  15. FONZYLANE [Suspect]
     Dosage: 450 MG DAILY PO
     Route: 048
     Dates: start: 20041018
  16. PLAVIX [Concomitant]
  17. ACUITEL [Concomitant]
  18. DUPHALAC [Concomitant]

REACTIONS (5)
  - ARRHYTHMIA [None]
  - ATRIAL FIBRILLATION [None]
  - EXTRAPYRAMIDAL DISORDER [None]
  - MUSCULOSKELETAL STIFFNESS [None]
  - TREMOR [None]
